FAERS Safety Report 16764426 (Version 2)
Quarter: 2019Q3

REPORT INFORMATION
  Report Type: Spontaneous
  Country: JP (occurrence: JP)
  Receive Date: 20190902
  Receipt Date: 20190924
  Transmission Date: 20191005
  Serious: Yes (Other)
  Sender: FDA-Public Use
  Company Number: JP-ALLERGAN-1935442US

PATIENT
  Sex: Male

DRUGS (31)
  1. REMICADE [Suspect]
     Active Substance: INFLIXIMAB
     Dosage: 600 MG, QD
     Route: 041
  2. TRAMCET [Concomitant]
     Active Substance: ACETAMINOPHEN\TRAMADOL
     Indication: NUTRITIONAL SUPPLEMENTATION
  3. CHOYOTO [Concomitant]
  4. PREDONINE [Concomitant]
     Active Substance: PREDNISOLONE
     Route: 048
  5. GASTER [Concomitant]
     Active Substance: FAMOTIDINE
  6. LOPEMIN [Concomitant]
     Active Substance: LOPERAMIDE HYDROCHLORIDE
  7. ELENTAL [Concomitant]
     Active Substance: AMINO ACIDS\CARBOHYDRATES\MINERALS\SOYBEAN OIL\VITAMINS
     Route: 048
  8. STELARA [Suspect]
     Active Substance: USTEKINUMAB
     Indication: CROHN^S DISEASE
     Dosage: 90 MG, QD
     Route: 058
     Dates: start: 20190723
  9. ALLELOCK [Concomitant]
     Active Substance: OLOPATADINE HYDROCHLORIDE
  10. LYRICA [Concomitant]
     Active Substance: PREGABALIN
  11. DAIKENCHUTO [Concomitant]
     Active Substance: HERBALS
  12. CODEINE PHOSPHATE [Concomitant]
     Active Substance: CODEINE PHOSPHATE
  13. KERATINAMIN [Concomitant]
     Active Substance: UREA
  14. ISODINE [Concomitant]
     Active Substance: POVIDONE-IODINE
  15. LEXOTAN [Concomitant]
     Active Substance: BROMAZEPAM
  16. REMICADE [Suspect]
     Active Substance: INFLIXIMAB
     Indication: CROHN^S DISEASE
     Dosage: 10 MG/KG, QD
     Route: 041
  17. REMICADE [Suspect]
     Active Substance: INFLIXIMAB
     Dosage: 600 MG, QD
     Route: 041
  18. FULCALIQ [Concomitant]
     Active Substance: AMINO ACIDS\CARBOHYDRATES\ELECTROLYTES NOS\VITAMINS
  19. NERIPROCT [Concomitant]
     Active Substance: DIFLUCORTOLONE VALERATE\LIDOCAINE
  20. RINDERON [Concomitant]
  21. HEPARIN NA LOCK [Concomitant]
     Active Substance: HEPARIN SODIUM
  22. PHYSIO 35 [Concomitant]
     Active Substance: ELECTROLYTES NOS
  23. PENLES [Concomitant]
     Active Substance: LIDOCAINE
  24. CATLEP [Concomitant]
     Active Substance: INDOMETHACIN
  25. LIDOMEX [Concomitant]
     Active Substance: PREDNISOLONE VALERATE ACETATE
  26. URSODEOXYCHOLIC ACID - BP [Suspect]
     Active Substance: URSODIOL
     Indication: PRODUCT USED FOR UNKNOWN INDICATION
     Dosage: 50 MG, UNKNOWN
     Route: 048
  27. STELARA [Suspect]
     Active Substance: USTEKINUMAB
     Dosage: 390 MG, QD
     Route: 041
     Dates: start: 20190528
  28. ADONA [Concomitant]
  29. PENTASA [Concomitant]
     Active Substance: MESALAMINE
  30. VOLTAREN [Concomitant]
     Active Substance: DICLOFENAC SODIUM
  31. FLAGYL [Concomitant]
     Active Substance: METRONIDAZOLE\METRONIDAZOLE HYDROCHLORIDE

REACTIONS (6)
  - Weight increased [Not Recovered/Not Resolved]
  - Erectile dysfunction [Recovered/Resolved]
  - Therapeutic product effect decreased [Unknown]
  - Diarrhoea [Recovered/Resolved]
  - Haematochezia [Recovered/Resolved]
  - Rash [Recovered/Resolved]

NARRATIVE: CASE EVENT DATE: 20190809
